FAERS Safety Report 24711541 (Version 1)
Quarter: 2024Q4

REPORT INFORMATION
  Report Type: Spontaneous
  Country: JP (occurrence: JP)
  Receive Date: 20241209
  Receipt Date: 20241209
  Transmission Date: 20250114
  Serious: Yes (Life-Threatening, Hospitalization, Other)
  Sender: CHEPLAPHARM
  Company Number: JP-CP_KK-2024JP002266

PATIENT
  Age: 14 Year

DRUGS (2)
  1. OLANZAPINE [Suspect]
     Active Substance: OLANZAPINE
     Indication: Mental disorder
  2. BREXPIPRAZOLE [Suspect]
     Active Substance: BREXPIPRAZOLE
     Indication: Mental disorder

REACTIONS (4)
  - Intentional self-injury [Unknown]
  - Restlessness [Unknown]
  - Suicide attempt [Recovering/Resolving]
  - Suicidal ideation [Unknown]
